FAERS Safety Report 25228168 (Version 1)
Quarter: 2025Q2

REPORT INFORMATION
  Report Type: Report from Study
  Country: CA (occurrence: CA)
  Receive Date: 20250423
  Receipt Date: 20250423
  Transmission Date: 20250717
  Serious: Yes (Other)
  Sender: NOVARTIS
  Company Number: CA-002147023-NVSC2025CA039121

PATIENT
  Sex: Female

DRUGS (2)
  1. KESIMPTA [Suspect]
     Active Substance: OFATUMUMAB
     Indication: Relapsing-remitting multiple sclerosis
     Dosage: 20 MG, QW
     Route: 058
     Dates: start: 20250303
  2. KESIMPTA [Suspect]
     Active Substance: OFATUMUMAB
     Dosage: 20 MG, QMO
     Route: 058

REACTIONS (10)
  - Myelitis [Unknown]
  - Multiple sclerosis [Unknown]
  - Headache [Unknown]
  - Pain [Unknown]
  - Dizziness [Recovered/Resolved]
  - Sensory disturbance [Unknown]
  - Micturition urgency [Unknown]
  - Fatigue [Unknown]
  - Disturbance in attention [Unknown]
  - Influenza like illness [Unknown]
